FAERS Safety Report 6219817 (Version 4)
Quarter: 2015Q4

REPORT INFORMATION
  Report Type: Spontaneous
  Country: US (occurrence: US)
  Receive Date: 20070122
  Receipt Date: 20151006
  Transmission Date: 20160305
  Serious: Yes (Other)
  Sender: FDA-Public Use
  Company Number: US-GLAXOSMITHKLINE-A0636140A

PATIENT
  Age: 79 Year
  Sex: Female
  Weight: 80 kg

DRUGS (14)
  1. DIOVAN [Suspect]
     Active Substance: VALSARTAN
     Indication: PRODUCT USED FOR UNKNOWN INDICATION
     Dosage: 40 MG, BID (EVERY 12 HOURS)
     Route: 048
  2. NASONEX [Concomitant]
     Active Substance: MOMETASONE FUROATE
  3. EXEMESTANE. [Suspect]
     Active Substance: EXEMESTANE
     Indication: HORMONE SUPPRESSION THERAPY
     Dosage: 25 MG, U
     Dates: end: 20150601
  4. FLOVENT [Concomitant]
     Active Substance: FLUTICASONE PROPIONATE
  5. HYDROCHLOROTHIAZIDE. [Suspect]
     Active Substance: HYDROCHLOROTHIAZIDE
     Indication: PRODUCT USED FOR UNKNOWN INDICATION
     Dosage: 12.5 MG, BID
  6. DIOVAN HCT [Suspect]
     Active Substance: HYDROCHLOROTHIAZIDE\VALSARTAN
     Indication: PRODUCT USED FOR UNKNOWN INDICATION
     Dosage: UNK
  7. ZYRTEC [Concomitant]
     Active Substance: CETIRIZINE HYDROCHLORIDE
  8. COREG CR [Suspect]
     Active Substance: CARVEDILOL PHOSPHATE
     Indication: HYPERTENSION
     Dosage: UNK
     Route: 048
  9. COREG [Suspect]
     Active Substance: CARVEDILOL
     Indication: HYPERTENSION
     Dosage: 3.125 MG, QD
     Route: 048
     Dates: start: 2002, end: 20111025
  10. COREG [Suspect]
     Active Substance: CARVEDILOL
     Dosage: 12.5 MG, QID (EVERY 6 HOURS)
  11. NORVASC [Concomitant]
     Active Substance: AMLODIPINE BESYLATE
  12. COREG CR [Suspect]
     Active Substance: CARVEDILOL PHOSPHATE
     Dosage: ^COREG CR 20^
     Route: 048
     Dates: end: 20111025
  13. COREG CR [Suspect]
     Active Substance: CARVEDILOL PHOSPHATE
     Dosage: 40 MG, U
  14. LISINOPRIL. [Suspect]
     Active Substance: LISINOPRIL
     Indication: HYPERTENSION
     Route: 065
     Dates: start: 200508

REACTIONS (24)
  - Oedema [Unknown]
  - Heart rate increased [Unknown]
  - Heart rate decreased [Unknown]
  - Ataxia [Unknown]
  - Pain in extremity [Unknown]
  - Atrial fibrillation [Unknown]
  - Hypertension [Unknown]
  - Blood pressure inadequately controlled [Unknown]
  - Painful respiration [Unknown]
  - Oedema peripheral [Unknown]
  - Surgery [Unknown]
  - Weight increased [Unknown]
  - Headache [Unknown]
  - Asthma [Unknown]
  - Asthenia [Unknown]
  - Dizziness [Unknown]
  - Hypersensitivity [Unknown]
  - Circulatory collapse [Unknown]
  - Peripheral swelling [Unknown]
  - Blood pressure immeasurable [Unknown]
  - Blunted affect [Unknown]
  - Blood cholesterol increased [Unknown]
  - Hypotension [Unknown]
  - Electrocardiogram change [Unknown]

NARRATIVE: CASE EVENT DATE: 2002
